FAERS Safety Report 14702103 (Version 2)
Quarter: 2018Q2

REPORT INFORMATION
  Report Type: Other
  Country: NL (occurrence: NL)
  Receive Date: 20180401
  Receipt Date: 20180415
  Transmission Date: 20180711
  Serious: Yes (Other)
  Sender: FDA-Public Use
  Company Number: NL-DEXPHARM-20180214

PATIENT
  Age: 45 Year
  Sex: Female

DRUGS (5)
  1. ETANERCEPT [Concomitant]
     Active Substance: ETANERCEPT
  2. OMEPRAZOLE. [Suspect]
     Active Substance: OMEPRAZOLE
  3. NAPROXEN. [Suspect]
     Active Substance: NAPROXEN
  4. FLUVOXAMINE [Concomitant]
     Active Substance: FLUVOXAMINE
  5. LEVETIRACETAM. [Concomitant]
     Active Substance: LEVETIRACETAM

REACTIONS (1)
  - Colitis microscopic [Recovered/Resolved]
